FAERS Safety Report 23318280 (Version 1)
Quarter: 2023Q4

REPORT INFORMATION
  Report Type: Spontaneous
  Country: CN (occurrence: CN)
  Receive Date: 20231220
  Receipt Date: 20231220
  Transmission Date: 20240110
  Serious: Yes (Hospitalization)
  Sender: FDA-Public Use
  Company Number: CN-ABBVIE-5538049

PATIENT
  Age: 38 Year
  Sex: Female

DRUGS (1)
  1. BOTOX [Suspect]
     Active Substance: ONABOTULINUMTOXINA
     Indication: Product used for unknown indication
     Dosage: TIME INTERVAL: AS NECESSARY: FORM STRENGTH: 100 MG
     Route: 065
     Dates: start: 20230515, end: 20230515

REACTIONS (7)
  - Botulism [Recovering/Resolving]
  - Motor dysfunction [Recovering/Resolving]
  - Neuropathy peripheral [Recovering/Resolving]
  - Muscular weakness [Recovering/Resolving]
  - Loss of personal independence in daily activities [Recovering/Resolving]
  - Diplopia [Recovering/Resolving]
  - Off label use [Unknown]

NARRATIVE: CASE EVENT DATE: 20230101
